FAERS Safety Report 6519951-7 (Version None)
Quarter: 2009Q4

REPORT INFORMATION
  Report Type: 
  Country: None (occurrence: None)
  Receive Date: 20091229
  Receipt Date: 20091217
  Transmission Date: 20100525
  Serious: Yes (Hospitalization)
  Sender: FDA-Public Use
  Company Number: GB-PFIZER INC-2006051391

PATIENT
  Sex: Male

DRUGS (13)
  1. SUNITINIB MALATE [Suspect]
     Indication: RENAL CELL CARCINOMA
     Dosage: 50 MG, 1X/DAY
     Route: 048
     Dates: start: 20060330, end: 20060411
  2. SUNITINIB MALATE [Suspect]
     Dosage: 50 MG, 1X/DAY
     Route: 048
     Dates: start: 20060412, end: 20060413
  3. BECLOMETHASONE DIPROPIONATE [Concomitant]
     Route: 055
     Dates: start: 20060407, end: 20060417
  4. ALBUTEROL [Concomitant]
     Route: 055
     Dates: start: 20060407, end: 20060417
  5. ACETYLSALICYLIC ACID SRT [Concomitant]
     Route: 048
     Dates: start: 20060409, end: 20060417
  6. GLICLAZIDE [Concomitant]
     Dosage: UNK
     Route: 048
  7. RAMIPRIL [Concomitant]
     Route: 048
     Dates: start: 20060409, end: 20060417
  8. BEZAFIBRATE [Concomitant]
     Route: 048
     Dates: start: 20060407, end: 20060416
  9. CO-CODAMOL [Concomitant]
     Route: 048
     Dates: start: 20060408, end: 20060413
  10. TRAMADOL HCL [Concomitant]
     Route: 048
     Dates: start: 20060408, end: 20060417
  11. CYCLIZINE [Concomitant]
     Route: 030
     Dates: start: 20060409, end: 20060409
  12. DOXAZOSIN MESYLATE [Concomitant]
     Route: 048
     Dates: start: 20060409, end: 20060416
  13. HEPARIN [Concomitant]
     Route: 058
     Dates: start: 20060408, end: 20060417

REACTIONS (3)
  - LETHARGY [None]
  - PNEUMONIA [None]
  - PYREXIA [None]
